FAERS Safety Report 11718148 (Version 2)
Quarter: 2015Q4

REPORT INFORMATION
  Report Type: Spontaneous
  Country: FR (occurrence: FR)
  Receive Date: 20151110
  Receipt Date: 20151210
  Transmission Date: 20160304
  Serious: Yes (Hospitalization, Other)
  Sender: FDA-Public Use
  Company Number: FR-TOLMAR, INC.-2015FR009743

PATIENT
  Age: 86 Year
  Sex: Male
  Weight: 80 kg

DRUGS (8)
  1. TAREG [Concomitant]
     Active Substance: VALSARTAN
     Route: 065
  2. LYRICA [Concomitant]
     Active Substance: PREGABALIN
     Route: 065
  3. CELIPROLOL [Concomitant]
     Active Substance: CELIPROLOL
     Route: 065
  4. ELIGARD [Suspect]
     Active Substance: LEUPROLIDE ACETATE
     Indication: PROSTATE CANCER
     Dosage: UNK
     Route: 065
     Dates: start: 20120503
  5. XTANDI [Suspect]
     Active Substance: ENZALUTAMIDE
     Indication: HORMONE-REFRACTORY PROSTATE CANCER
     Dosage: 160 MG, UNK
     Route: 048
     Dates: start: 20150610
  6. BUFLOMEDIL HYDROCHLORIDE [Concomitant]
     Active Substance: BUFLOMEDIL HYDROCHLORIDE
     Route: 065
  7. LASILIX                            /00032601/ [Concomitant]
     Active Substance: FUROSEMIDE
     Route: 065
  8. ZYLORIC [Concomitant]
     Active Substance: ALLOPURINOL
     Route: 065

REACTIONS (4)
  - Urinary retention [Unknown]
  - Partial seizures with secondary generalisation [Recovered/Resolved]
  - Presyncope [Unknown]
  - Meningioma [Recovered/Resolved]

NARRATIVE: CASE EVENT DATE: 20150814
